FAERS Safety Report 8387114-9 (Version None)
Quarter: 2012Q2

REPORT INFORMATION
  Report Type: 
  Country: None (occurrence: None)
  Receive Date: 20120525
  Receipt Date: 20120524
  Transmission Date: 20120825
  Serious: Yes (Other)
  Sender: FDA-Public Use
  Company Number: US-BAYER-2012-051825

PATIENT
  Age: 25 Year
  Sex: Male

DRUGS (3)
  1. BETASERON [Suspect]
     Dosage: 0.25 MG (1ML), QOD
     Route: 058
  2. AMOXICILLIN [Concomitant]
  3. VITAMIN D [Concomitant]

REACTIONS (1)
  - PHARYNGITIS STREPTOCOCCAL [None]
